FAERS Safety Report 24088074 (Version 1)
Quarter: 2024Q3

REPORT INFORMATION
  Report Type: Spontaneous
  Country: US (occurrence: US)
  Receive Date: 20240715
  Receipt Date: 20240715
  Transmission Date: 20241017
  Serious: No
  Sender: Steriscience PTE
  Company Number: US-STERISCIENCE B.V.-2024-ST-000734

PATIENT
  Age: 44 Year
  Sex: Female

DRUGS (16)
  1. MYCOPHENOLATE MOFETIL [Suspect]
     Active Substance: MYCOPHENOLATE MOFETIL
     Indication: Rheumatoid arthritis
     Dosage: 500 MILLIGRAM, BID
     Route: 042
  2. MYCOPHENOLATE MOFETIL [Suspect]
     Active Substance: MYCOPHENOLATE MOFETIL
     Indication: Mixed connective tissue disease
     Dosage: 1 GRAM, BID
     Route: 065
  3. MYCOPHENOLATE MOFETIL [Suspect]
     Active Substance: MYCOPHENOLATE MOFETIL
     Indication: Antisynthetase syndrome
  4. SOLU-MEDROL [Concomitant]
     Active Substance: METHYLPREDNISOLONE SODIUM SUCCINATE
     Indication: Rheumatoid arthritis
     Dosage: 125 MILLIGRAM, BID
     Route: 065
  5. SOLU-MEDROL [Concomitant]
     Active Substance: METHYLPREDNISOLONE SODIUM SUCCINATE
     Indication: Antisynthetase syndrome
  6. SOLU-MEDROL [Concomitant]
     Active Substance: METHYLPREDNISOLONE SODIUM SUCCINATE
     Indication: Mixed connective tissue disease
  7. PREDNISONE [Concomitant]
     Active Substance: PREDNISONE
     Indication: Pneumonia
     Dosage: 40 MILLIGRAM
     Route: 065
  8. PREDNISONE [Concomitant]
     Active Substance: PREDNISONE
     Indication: Mixed connective tissue disease
     Dosage: UNK
     Route: 065
  9. PREDNISONE [Concomitant]
     Active Substance: PREDNISONE
     Indication: Antisynthetase syndrome
     Dosage: 40 MILLIGRAM, QD
     Route: 065
  10. PREDNISONE [Concomitant]
     Active Substance: PREDNISONE
     Indication: Rheumatoid arthritis
  11. CEFTRIAXONE [Concomitant]
     Active Substance: CEFTRIAXONE\CEFTRIAXONE SODIUM
     Indication: Pneumonia
     Dosage: UNK
     Route: 065
  12. DOXYCYCLINE [Concomitant]
     Active Substance: DOXYCYCLINE\DOXYCYCLINE HYCLATE
     Indication: Pneumonia
     Dosage: UNK
     Route: 065
  13. DOXYCYCLINE [Concomitant]
     Active Substance: DOXYCYCLINE\DOXYCYCLINE HYCLATE
     Dosage: UNK
     Route: 065
  14. AVELOX [Concomitant]
     Active Substance: MOXIFLOXACIN HYDROCHLORIDE
     Indication: Pneumonia
     Dosage: UNK
     Route: 065
  15. AZITHROMYCIN [Concomitant]
     Active Substance: AZITHROMYCIN
     Indication: Pneumonia
     Dosage: UNK
     Route: 065
  16. AMOXICILLIN [Concomitant]
     Active Substance: AMOXICILLIN
     Indication: Pneumonia
     Dosage: UNK
     Route: 065

REACTIONS (3)
  - Abdominal pain [Unknown]
  - Nausea [Unknown]
  - Off label use [Unknown]
